FAERS Safety Report 21628069 (Version 1)
Quarter: 2022Q4

REPORT INFORMATION
  Report Type: Spontaneous
  Country: US (occurrence: None)
  Receive Date: 20221121
  Receipt Date: 20221121
  Transmission Date: 20230113
  Serious: No
  Sender: FDA-Public Use
  Company Number: None

PATIENT
  Age: 36 Year
  Sex: Female

DRUGS (7)
  1. HERBALS\MITRAGYNINE [Suspect]
     Active Substance: HERBALS\MITRAGYNINE
     Indication: Phytotherapy
     Dosage: OTHER QUANTITY : 2 OUNCE(S);?
     Route: 048
  2. VITAMINS [Concomitant]
     Active Substance: VITAMINS
  3. THEANINE [Concomitant]
     Active Substance: THEANINE
  4. ARGININE [Concomitant]
     Active Substance: ARGININE
  5. VALERIAN [Concomitant]
     Active Substance: VALERIAN
  6. FLAX SEED [Concomitant]
     Active Substance: FLAX SEED
  7. FISH OIL [Concomitant]
     Active Substance: FISH OIL

REACTIONS (2)
  - Somnolence [None]
  - Heart rate increased [None]

NARRATIVE: CASE EVENT DATE: 20221106
